FAERS Safety Report 23978880 (Version 2)
Quarter: 2024Q3

REPORT INFORMATION
  Report Type: Spontaneous
  Country: US (occurrence: US)
  Receive Date: 20240615
  Receipt Date: 20240730
  Transmission Date: 20241016
  Serious: Yes (Hospitalization, Other)
  Sender: AUROBINDO
  Company Number: US-AUROBINDO-AUR-APL-2024-029141

PATIENT
  Age: 23 Year
  Sex: Male
  Weight: 93.44 kg

DRUGS (2)
  1. CLOZAPINE [Suspect]
     Active Substance: CLOZAPINE
     Indication: Congenital megacolon
     Dosage: UNK
     Route: 065
  2. CLOZAPINE [Suspect]
     Active Substance: CLOZAPINE
     Indication: Congenital megacolon
     Dosage: UNK
     Route: 065

REACTIONS (2)
  - Hernia obstructive [Unknown]
  - Abdominal pain [Unknown]
